FAERS Safety Report 10329895 (Version 6)
Quarter: 2015Q2

REPORT INFORMATION
  Report Type: Report from Study
  Country: TH (occurrence: TH)
  Receive Date: 20140721
  Receipt Date: 20150508
  Transmission Date: 20150821
  Serious: Yes (Hospitalization, Other)
  Sender: FDA-Public Use
  Company Number: PHHO2014TH009808

PATIENT
  Age: 34 Year
  Sex: Female
  Weight: 62.9 kg

DRUGS (2)
  1. SOM230 [Suspect]
     Active Substance: PASIREOTIDE
     Indication: PITUITARY-DEPENDENT CUSHING^S SYNDROME
     Dosage: 0.9 MG/ML, UNK
     Route: 058
     Dates: start: 20121123, end: 20130802
  2. SOM230 [Suspect]
     Active Substance: PASIREOTIDE
     Dosage: 0.6 MG/ML, UNK
     Route: 058
     Dates: start: 20130802, end: 20140712

REACTIONS (2)
  - Cholangitis acute [Recovering/Resolving]
  - Cellulitis [Recovering/Resolving]

NARRATIVE: CASE EVENT DATE: 20140712
